FAERS Safety Report 19682576 (Version 2)
Quarter: 2021Q3

REPORT INFORMATION
  Report Type: Spontaneous
  Country: FR (occurrence: FR)
  Receive Date: 20210811
  Receipt Date: 20210916
  Transmission Date: 20211014
  Serious: Yes (Hospitalization, Other)
  Sender: FDA-Public Use
  Company Number: FR-JNJFOC-20210812947

PATIENT
  Age: 52 Year
  Sex: Female
  Weight: 46 kg

DRUGS (3)
  1. SIMPONI [Suspect]
     Active Substance: GOLIMUMAB
     Route: 058
     Dates: start: 2020
  2. SIMPONI [Suspect]
     Active Substance: GOLIMUMAB
     Indication: COLITIS ULCERATIVE
     Route: 058
     Dates: start: 201904, end: 201910
  3. SIMPONI [Suspect]
     Active Substance: GOLIMUMAB
     Route: 058
     Dates: start: 201910, end: 2020

REACTIONS (21)
  - Appendicitis [Unknown]
  - Back pain [Unknown]
  - Pain [Unknown]
  - Abdominal symptom [Unknown]
  - Sleep disorder [Unknown]
  - Musculoskeletal pain [Unknown]
  - Incorrect dose administered [Unknown]
  - Chills [Unknown]
  - Burning sensation [Not Recovered/Not Resolved]
  - Stress [Unknown]
  - Off label use [Unknown]
  - Colitis ulcerative [Unknown]
  - Malaise [Unknown]
  - Myositis [Unknown]
  - Mental disorder [Unknown]
  - Abnormal faeces [Unknown]
  - Abdominal pain [Unknown]
  - Enteritis [Unknown]
  - Paraesthesia [Unknown]
  - Hyperhidrosis [Unknown]
  - Crying [Unknown]

NARRATIVE: CASE EVENT DATE: 201904
